FAERS Safety Report 4557982-7 (Version None)
Quarter: 2005Q1

REPORT INFORMATION
  Report Type: 
  Country: None (occurrence: None)
  Receive Date: 20050121
  Receipt Date: 20040405
  Transmission Date: 20050727
  Serious: Yes (Other)
  Sender: FDA-Public Use
  Company Number: US-BRISTOL-MYERS SQUIBB COMPANY-12554317

PATIENT
  Age: 59 Year
  Sex: Female

DRUGS (3)
  1. SERZONE [Suspect]
     Indication: ANXIETY
     Route: 048
     Dates: start: 20020110, end: 20020201
  2. CELEBREX [Concomitant]
  3. LORTAB [Concomitant]

REACTIONS (6)
  - ALANINE AMINOTRANSFERASE INCREASED [None]
  - ANOREXIA [None]
  - ARTHRALGIA [None]
  - ASPARTATE AMINOTRANSFERASE INCREASED [None]
  - FATIGUE [None]
  - MYALGIA [None]
